FAERS Safety Report 4272874-9 (Version None)
Quarter: 2004Q1

REPORT INFORMATION
  Report Type: 
  Country: None (occurrence: None)
  Receive Date: 20040116
  Receipt Date: 20040107
  Transmission Date: 20041129
  Serious: Yes (Hospitalization)
  Sender: FDA-Public Use
  Company Number: 200410247GDDC

PATIENT
  Age: 61 Year
  Sex: Male
  Weight: 109.09 kg

DRUGS (4)
  1. TAXOTERE [Suspect]
     Indication: PROSTATE CANCER METASTATIC
     Route: 042
     Dates: start: 20031202, end: 20031230
  2. PS-341 [Concomitant]
     Indication: PROSTATE CANCER METASTATIC
     Route: 042
     Dates: start: 20031203, end: 20031231
  3. MS CONTIN [Concomitant]
     Indication: BACK PAIN
     Route: 048
  4. LORTAB [Concomitant]
     Indication: BACK PAIN
     Route: 048

REACTIONS (4)
  - CHEST PAIN [None]
  - DRUG INEFFECTIVE [None]
  - DYSPEPSIA [None]
  - GALLBLADDER DISORDER [None]
